FAERS Safety Report 8736082 (Version 2)
Quarter: 2012Q4

REPORT INFORMATION
  Report Type: 
  Country: US (occurrence: US)
  Receive Date: 20120822
  Receipt Date: 20120907
  Transmission Date: 20130627
  Serious: Yes (Death)
  Sender: FDA-Public Use
  Company Number: US-ASTELLAS-2012US007098

PATIENT
  Age: 59 Year
  Sex: Male
  Weight: 52 kg

DRUGS (1)
  1. PROGRAF [Suspect]
     Indication: STEM CELL TRANSPLANT
     Dosage: 4 mg, bid
     Route: 048

REACTIONS (2)
  - Off label use [Unknown]
  - Death [Fatal]
